FAERS Safety Report 24415506 (Version 1)
Quarter: 2024Q4

REPORT INFORMATION
  Report Type: Spontaneous
  Country: US (occurrence: US)
  Receive Date: 20241009
  Receipt Date: 20241009
  Transmission Date: 20250115
  Serious: Yes (Hospitalization, Other)
  Sender: ZYDUS PHARM
  Company Number: US-CADILA HEALTHCARE LIMITED-US-ZYDUS-112938

PATIENT

DRUGS (1)
  1. FENTANYL [Suspect]
     Active Substance: FENTANYL
     Indication: Product used for unknown indication
     Dosage: UNK
     Route: 065

REACTIONS (8)
  - Encephalopathy [None]
  - Nasal congestion [Unknown]
  - Poisoning [Unknown]
  - Generalised tonic-clonic seizure [Unknown]
  - Unresponsive to stimuli [Unknown]
  - Respiratory distress [Unknown]
  - Pupillary disorder [Unknown]
  - Accidental overdose [Unknown]
